FAERS Safety Report 4631525-1 (Version None)
Quarter: 2005Q2

REPORT INFORMATION
  Report Type: 
  Country: None (occurrence: None)
  Receive Date: 20050407
  Receipt Date: 20050330
  Transmission Date: 20051028
  Serious: Yes (Other)
  Sender: FDA-Public Use
  Company Number: 2005036902

PATIENT
  Sex: 0

DRUGS (7)
  1. NIFEDIPINE [Suspect]
     Indication: UTERINE CONTRACTIONS DURING PREGNANCY
     Dosage: 60 MG, PLACENTAL
     Route: 064
     Dates: start: 20040728
  2. HYDROXYZINE HCL [Concomitant]
  3. BETAMETHASONE [Concomitant]
  4. SALBUTAMOL SULFATE (SALBUTAMOL SULFATE) [Concomitant]
  5. CLAVULIN (AMOXICILLIN TRIHYDRATE, CLAVULANATE  POTASSIUM) [Concomitant]
  6. ERYTHROMYCIN [Concomitant]
  7. AMOXICILLIN TRIHYDRATE [Concomitant]

REACTIONS (18)
  - C-REACTIVE PROTEIN INCREASED [None]
  - CAESAREAN SECTION [None]
  - COUGH [None]
  - CREPITATIONS [None]
  - CYANOSIS [None]
  - DRUG EXPOSURE DURING PREGNANCY [None]
  - DYSPNOEA [None]
  - FOETAL DISORDER [None]
  - HAEMOLYSIS [None]
  - HAPTOGLOBIN DECREASED [None]
  - HYPERTHERMIA [None]
  - HYPOXIA [None]
  - LEUKOCYTOSIS [None]
  - MALAISE [None]
  - PULMONARY OEDEMA [None]
  - RETICULOCYTE COUNT INCREASED [None]
  - SINUS TACHYCARDIA [None]
  - VOMITING [None]
